FAERS Safety Report 19288234 (Version 1)
Quarter: 2021Q2

REPORT INFORMATION
  Report Type: Spontaneous
  Country: MX (occurrence: MX)
  Receive Date: 20210521
  Receipt Date: 20210521
  Transmission Date: 20210717
  Serious: Yes (Death, Hospitalization)
  Sender: FDA-Public Use
  Company Number: MX-BAYER-2021-144982

PATIENT
  Age: 89 Year
  Sex: Male

DRUGS (1)
  1. DAROLUTAMIDE. [Suspect]
     Active Substance: DAROLUTAMIDE
     Indication: PROSTATE CANCER
     Dosage: 600 MG, BID
     Route: 048

REACTIONS (1)
  - COVID-19 [Fatal]
